FAERS Safety Report 19320137 (Version 1)
Quarter: 2021Q2

REPORT INFORMATION
  Report Type: Spontaneous
  Country: US (occurrence: US)
  Receive Date: 20210527
  Receipt Date: 20210527
  Transmission Date: 20210717
  Serious: Yes (Other)
  Sender: FDA-Public Use
  Company Number: None

PATIENT
  Age: 20 Year
  Sex: Male

DRUGS (1)
  1. STELARA [Suspect]
     Active Substance: USTEKINUMAB

REACTIONS (5)
  - Staring [None]
  - Dysphemia [None]
  - Petit mal epilepsy [None]
  - Posterior reversible encephalopathy syndrome [None]
  - Dysarthria [None]

NARRATIVE: CASE EVENT DATE: 20210428
